FAERS Safety Report 19676948 (Version 2)
Quarter: 2021Q3

REPORT INFORMATION
  Report Type: Spontaneous
  Country: US (occurrence: US)
  Receive Date: 20210809
  Receipt Date: 20210816
  Transmission Date: 20211014
  Serious: Yes (Other)
  Sender: FDA-Public Use
  Company Number: US-PFIZER INC-202100962620

PATIENT
  Sex: Female
  Weight: 127.01 kg

DRUGS (1)
  1. CHANTIX [Suspect]
     Active Substance: VARENICLINE TARTRATE
     Indication: SMOKING CESSATION THERAPY
     Dosage: UNK (LOWER DOSE WITH STARTER PACK THEN REGULAR ONE)
     Dates: start: 2014

REACTIONS (2)
  - Myocardial infarction [Unknown]
  - Abnormal dreams [Unknown]
